FAERS Safety Report 14390474 (Version 3)
Quarter: 2018Q1

REPORT INFORMATION
  Report Type: Report from Study
  Country: US (occurrence: US)
  Receive Date: 20180116
  Receipt Date: 20180220
  Transmission Date: 20180509
  Serious: Yes (Hospitalization)
  Sender: FDA-Public Use
  Company Number: US-PUMA BIOTECHNOLOGY, LTD.-2018US000217

PATIENT

DRUGS (3)
  1. NERLYNX [Suspect]
     Active Substance: NERATINIB
     Indication: HER-2 POSITIVE BREAST CANCER
     Dosage: 240 MG (6 TABLETS), DAILY
     Route: 048
     Dates: start: 20171213, end: 20171226
  2. MULTIVITAMIN                       /00097801/ [Concomitant]
     Active Substance: VITAMINS
     Indication: PRODUCT USED FOR UNKNOWN INDICATION
  3. NERLYNX [Suspect]
     Active Substance: NERATINIB
     Dosage: 240 MG (6 TABLETS), DAILY
     Route: 048
     Dates: start: 20171231

REACTIONS (4)
  - Disease progression [Unknown]
  - Fall [Recovering/Resolving]
  - Off label use [Unknown]
  - Fatigue [Unknown]
